FAERS Safety Report 8054997-1 (Version None)
Quarter: 2012Q1

REPORT INFORMATION
  Report Type: 
  Country: None (occurrence: None)
  Receive Date: 20120119
  Receipt Date: 20120118
  Transmission Date: 20120608
  Serious: Yes (Other)
  Sender: FDA-Public Use
  Company Number: US-PFIZER INC-2011197848

PATIENT
  Sex: Male

DRUGS (32)
  1. MIRTAZAPINE [Suspect]
     Dosage: UNK
     Dates: start: 20070101
  2. EFFEXOR XR [Suspect]
     Dosage: UNK
  3. DEPAKOTE [Suspect]
     Indication: HEADACHE
     Dosage: UNK
  4. RISPERDAL [Suspect]
     Dosage: UNK
     Dates: start: 20070101
  5. SEROQUEL [Suspect]
     Dosage: UNK
     Dates: start: 20070101
  6. SKELAXIN [Suspect]
     Dosage: UNK
  7. IMITREX [Suspect]
     Indication: HEADACHE
     Dosage: UNK
  8. SOMA [Suspect]
     Dosage: UNK
  9. LEXAPRO [Suspect]
     Dosage: UNK
  10. VALIUM [Suspect]
     Indication: PAIN
     Dosage: UNK
  11. CYMBALTA [Suspect]
     Indication: PAIN
  12. KLONOPIN [Suspect]
     Dosage: UNK
  13. ZOLOFT [Suspect]
     Dosage: UNK
  14. GEODON [Suspect]
     Dosage: UNK
  15. CYMBALTA [Suspect]
     Indication: DEPRESSION
  16. CELEBREX [Suspect]
     Dosage: UNK
  17. ZYPREXA [Suspect]
     Dosage: UNK
  18. VALIUM [Suspect]
     Indication: HYPOTONIA
  19. TRAZODONE HCL [Suspect]
     Indication: PAIN
  20. ELAVIL [Suspect]
     Dosage: UNK
  21. LITHIUM [Suspect]
     Dosage: UNK
     Dates: start: 20070101
  22. TEGRETOL [Suspect]
     Dosage: UNK
  23. WELLBUTRIN [Suspect]
     Dosage: UNK
  24. BUSPAR [Suspect]
     Dosage: UNK
  25. VALIUM [Suspect]
     Indication: ANXIETY
  26. EFFEXOR [Suspect]
     Dosage: 37.5 MG, UNK
  27. LAMICTAL [Suspect]
     Dosage: UNK
  28. PAXIL [Suspect]
     Dosage: UNK
  29. RITALIN [Suspect]
     Indication: HEADACHE
  30. PAMELOR [Suspect]
  31. ZOMIG [Suspect]
     Indication: HEADACHE
     Dosage: UNK
  32. TRAZODONE HCL [Suspect]
     Indication: DEPRESSION

REACTIONS (29)
  - DRUG INEFFECTIVE [None]
  - MEMORY IMPAIRMENT [None]
  - AGGRESSION [None]
  - CONSTIPATION [None]
  - SOMNOLENCE [None]
  - SUICIDAL IDEATION [None]
  - CONDITION AGGRAVATED [None]
  - UNEVALUABLE EVENT [None]
  - MUSCLE SPASMS [None]
  - DEPENDENCE [None]
  - DEAFNESS [None]
  - WEIGHT INCREASED [None]
  - FATIGUE [None]
  - DISTURBANCE IN ATTENTION [None]
  - ERECTION INCREASED [None]
  - INSOMNIA [None]
  - DRUG EFFECT INCREASED [None]
  - PAIN [None]
  - ANXIETY [None]
  - GASTRIC ULCER [None]
  - ANGER [None]
  - MOOD SWINGS [None]
  - RASH [None]
  - INFLUENZA LIKE ILLNESS [None]
  - AGITATION [None]
  - FEELING ABNORMAL [None]
  - RECTAL HAEMORRHAGE [None]
  - EAR DISORDER [None]
  - BREAST ENLARGEMENT [None]
